FAERS Safety Report 6183550-X (Version None)
Quarter: 2009Q2

REPORT INFORMATION
  Report Type: 
  Country: None (occurrence: None)
  Receive Date: 20090508
  Receipt Date: 20090501
  Transmission Date: 20091009
  Serious: Yes (Other)
  Sender: FDA-Public Use
  Company Number: US-RANBAXY-2009US-22150

PATIENT

DRUGS (3)
  1. ISOTRETINOIN [Suspect]
     Indication: DRUG USE FOR UNKNOWN INDICATION
     Dosage: 20 MG, UNK
     Route: 048
     Dates: start: 20080825
  2. ISOTRETINOIN [Suspect]
     Dosage: 40 MG, TID
     Route: 048
     Dates: start: 20080825, end: 20090223
  3. UNKNOWN MEDICATION [Suspect]
     Indication: ABORTION INDUCED
     Dosage: UNK
     Dates: start: 20090227, end: 20090228

REACTIONS (4)
  - BREAST TENDERNESS [None]
  - NASOPHARYNGITIS [None]
  - NAUSEA [None]
  - PREGNANCY [None]
